FAERS Safety Report 8177637-X (Version None)
Quarter: 2012Q1

REPORT INFORMATION
  Report Type: 
  Country: None (occurrence: None)
  Receive Date: 20120301
  Receipt Date: 20120223
  Transmission Date: 20120608
  Serious: Yes (Other)
  Sender: FDA-Public Use
  Company Number: PHHY2012CO015318

PATIENT
  Sex: Female

DRUGS (6)
  1. BISOPROLOL FUMARATE [Concomitant]
     Indication: BLOOD PRESSURE
     Dosage: UNK UKN, 1 TABLET DAILY
  2. PLAVIX [Concomitant]
     Dosage: UNK UKN, 1 TABLET DAILY
  3. ZOLEDRONOC ACID [Suspect]
     Indication: OSTEOPOROSIS
     Dosage: 5 MG, UNK
     Route: 042
     Dates: start: 20101112
  4. ATORVASTATIN [Concomitant]
     Dosage: UNK UKN, 1 TABLET DAILY
  5. ACETYLSALICYLIC ACID SRT [Concomitant]
     Dosage: UNK UKN, UNK
  6. ALDACTONE [Concomitant]
     Dosage: 25 MG, DAILY

REACTIONS (4)
  - PARALYSIS [None]
  - DIZZINESS [None]
  - TONGUE PARALYSIS [None]
  - TRANSIENT ISCHAEMIC ATTACK [None]
